FAERS Safety Report 5096233-4 (Version None)
Quarter: 2006Q3

REPORT INFORMATION
  Report Type: 
  Country: None (occurrence: None)
  Receive Date: 20060905
  Receipt Date: 20060829
  Transmission Date: 20061208
  Serious: Yes (Hospitalization)
  Sender: FDA-Public Use
  Company Number: US-MERCK-0608USA06833

PATIENT
  Age: 67 Year
  Sex: Male

DRUGS (1)
  1. INVANZ [Suspect]
     Indication: SEPSIS
     Route: 042
     Dates: start: 20060801, end: 20060801

REACTIONS (3)
  - ANGIONEUROTIC OEDEMA [None]
  - OEDEMA PERIPHERAL [None]
  - SWELLING FACE [None]
